FAERS Safety Report 16920245 (Version 1)
Quarter: 2019Q4

REPORT INFORMATION
  Report Type: Spontaneous
  Country: US (occurrence: US)
  Receive Date: 20190822
  Receipt Date: 20190822
  Transmission Date: 20200122
  Serious: No
  Sender: FDA-Public Use
  Company Number: None

PATIENT
  Age: 61 Year
  Sex: Female
  Weight: 72.9 kg

DRUGS (3)
  1. BLEOMYCIN [Suspect]
     Active Substance: BLEOMYCIN SULFATE
     Dates: end: 20190729
  2. ETOPOSIDE (VP-16) [Suspect]
     Active Substance: ETOPOSIDE
     Dates: end: 20190802
  3. CISPLATIN. [Suspect]
     Active Substance: CISPLATIN
     Dates: end: 20190802

REACTIONS (5)
  - Pruritus [None]
  - Neutropenia [None]
  - Rash maculo-papular [None]
  - Platelet count decreased [None]
  - Rash [None]

NARRATIVE: CASE EVENT DATE: 20190811
